FAERS Safety Report 10973217 (Version 2)
Quarter: 2015Q4

REPORT INFORMATION
  Report Type: Spontaneous
  Country: US (occurrence: US)
  Receive Date: 20150401
  Receipt Date: 20151020
  Transmission Date: 20160304
  Serious: No
  Sender: FDA-Public Use
  Company Number: US-AMGEN-USASP2014077680

PATIENT
  Age: 0 Day
  Sex: Male

DRUGS (10)
  1. VITAMIN D3 [Concomitant]
     Active Substance: CHOLECALCIFEROL
     Dosage: 2000 IU, QWK
     Route: 048
     Dates: start: 201408
  2. VITAMIN A                          /00056001/ [Concomitant]
     Active Substance: RETINOL
     Dosage: PRN
     Dates: start: 2015
  3. DTAP [Concomitant]
     Active Substance: DIPHTHERIA AND TETANUS TOXOIDS AND ACELLULAR PERTUSSIS VACCINE ADSORBED
     Dosage: UNK 3 DOSES
  4. PROBIOTICS                         /07325001/ [Concomitant]
     Active Substance: BIFIDOBACTERIUM LONGUM\LACTOBACILLUS ACIDOPHILUS\LACTOBACILLUS RHAMNOSUS
     Dosage: HLC NEONATE 1-3X/WEEK
     Route: 048
     Dates: start: 201408
  5. FISH OIL [Concomitant]
     Active Substance: FISH OIL
     Dosage: 1050 MG, QD
     Route: 048
     Dates: start: 20141001
  6. PRENATAL VITAMINS                  /07499601/ [Concomitant]
     Active Substance: VITAMINS
     Dosage: UNK UNK, BID
     Route: 063
     Dates: start: 20140830
  7. VITAMIN C [Concomitant]
     Active Substance: ASCORBIC ACID
     Dosage: PRN
     Dates: start: 2015
  8. PREVNAR 13 [Concomitant]
     Active Substance: PNEUMOCOCCAL 13-VALENT CONJUGATE VACCINE
     Dosage: UNK 1 DOSE
  9. VITAMIN D                          /00107901/ [Concomitant]
     Active Substance: ERGOCALCIFEROL
     Dosage: 2000 UNK, QWK
     Route: 048
     Dates: start: 20141001
  10. ENBREL [Suspect]
     Active Substance: ETANERCEPT
     Indication: EXPOSURE DURING BREAST FEEDING
     Dosage: 50 MG, QWK
     Route: 063
     Dates: start: 20120427

REACTIONS (4)
  - Exposure during breast feeding [Not Recovered/Not Resolved]
  - Congenital skin dimples [Unknown]
  - Viral infection [Unknown]
  - Haemoglobin decreased [Unknown]

NARRATIVE: CASE EVENT DATE: 20140830
